FAERS Safety Report 24270522 (Version 1)
Quarter: 2024Q3

REPORT INFORMATION
  Report Type: Report from Study
  Country: US (occurrence: US)
  Receive Date: 20240831
  Receipt Date: 20240831
  Transmission Date: 20241016
  Serious: Yes (Hospitalization, Other)
  Sender: ABBVIE
  Company Number: US-ABBVIE-5892737

PATIENT
  Age: 11 Year
  Sex: Male
  Weight: 49.895 kg

DRUGS (2)
  1. HUMIRA [Suspect]
     Active Substance: ADALIMUMAB
     Indication: Crohn^s disease
     Dosage: FORM STRENGTH: 80 MG?CITRATE FREE
     Route: 058
     Dates: start: 20231003, end: 202405
  2. HUMIRA [Suspect]
     Active Substance: ADALIMUMAB
     Dosage: FORM STRENGTH: 80 MG?CITRATE FREE
     Route: 058
     Dates: start: 202405

REACTIONS (1)
  - Intestinal stenosis [Recovering/Resolving]

NARRATIVE: CASE EVENT DATE: 20240201
